FAERS Safety Report 9016663 (Version 1)
Quarter: 2013Q1

REPORT INFORMATION
  Report Type: Spontaneous
  Country: US (occurrence: US)
  Receive Date: 20130117
  Receipt Date: 20130117
  Transmission Date: 20140127
  Serious: Yes (Other)
  Sender: FDA-Public Use
  Company Number: US-AMGEN-USASP2013001417

PATIENT
  Age: 68 Year
  Sex: Female

DRUGS (1)
  1. PROLIA [Suspect]
     Indication: OSTEOPOROSIS POSTMENOPAUSAL

REACTIONS (8)
  - Mobility decreased [Unknown]
  - Feeling abnormal [Unknown]
  - Gait disturbance [Unknown]
  - Blood potassium decreased [Unknown]
  - Arthralgia [Unknown]
  - Myalgia [Unknown]
  - Musculoskeletal pain [Unknown]
  - Pain in extremity [Unknown]
